FAERS Safety Report 6403207-7 (Version None)
Quarter: 2009Q4

REPORT INFORMATION
  Report Type: 
  Country: None (occurrence: None)
  Receive Date: 20091015
  Receipt Date: 20091015
  Transmission Date: 20100525
  Serious: Yes (Life-Threatening)
  Sender: FDA-Public Use
  Company Number: None

PATIENT
  Sex: Male
  Weight: 57 kg

DRUGS (3)
  1. AMIODARONE HCL [Suspect]
     Indication: CONGESTIVE CARDIOMYOPATHY
     Dosage: 1000MG OVER 24 HOURS IV
     Route: 042
     Dates: start: 20090630
  2. DOBUTAMINE HCL [Concomitant]
  3. FAMOTIDINE [Concomitant]

REACTIONS (4)
  - HYPERHIDROSIS [None]
  - RESPIRATORY RATE INCREASED [None]
  - STRIDOR [None]
  - TACHYCARDIA [None]
